FAERS Safety Report 13877605 (Version 1)
Quarter: 2017Q3

REPORT INFORMATION
  Report Type: Spontaneous
  Country: IT (occurrence: IT)
  Receive Date: 20170817
  Receipt Date: 20170817
  Transmission Date: 20171127
  Serious: Yes (Hospitalization)
  Sender: FDA-Public Use
  Company Number: IT-JNJFOC-20170813288

PATIENT
  Age: 82 Year
  Sex: Male

DRUGS (6)
  1. ANDROCUR [Concomitant]
     Active Substance: CYPROTERONE ACETATE
     Route: 065
  2. XARELTO [Suspect]
     Active Substance: RIVAROXABAN
     Indication: ATRIAL FIBRILLATION
     Route: 048
  3. LOBIVON [Concomitant]
     Active Substance: NEBIVOLOL HYDROCHLORIDE
     Route: 048
  4. TAMSULOSIN HYDROCHLORIDE. [Concomitant]
     Active Substance: TAMSULOSIN HYDROCHLORIDE
     Route: 048
  5. FLUTICASONE PROPIONATE W/SALMETEROL XINAFOATE [Concomitant]
     Active Substance: FLUTICASONE PROPIONATE\SALMETEROL XINAFOATE
     Indication: CHRONIC OBSTRUCTIVE PULMONARY DISEASE
     Route: 055
  6. DELTACORTENE [Concomitant]
     Active Substance: PREDNISONE
     Route: 048

REACTIONS (3)
  - Hydronephrosis [Recovering/Resolving]
  - Haematuria [Recovering/Resolving]
  - Pyelitis [Recovering/Resolving]

NARRATIVE: CASE EVENT DATE: 20160406
